FAERS Safety Report 9415080 (Version 1)
Quarter: 2013Q3

REPORT INFORMATION
  Report Type: Spontaneous
  Country: US (occurrence: US)
  Receive Date: 20130723
  Receipt Date: 20130723
  Transmission Date: 20140515
  Serious: Yes (Death, Hospitalization, Other)
  Sender: FDA-Public Use
  Company Number: US-ACTAVIS-2013-12547

PATIENT
  Age: 78 Year
  Sex: Female

DRUGS (11)
  1. SUMATRIPTAN SUCCINATE (UNKNOWN) [Suspect]
     Indication: MIGRAINE
     Dosage: 25 MG, SINGLE
     Route: 048
  2. CYCLOSPORINE (WATSON LABORATORIES) [Suspect]
     Indication: RENAL TRANSPLANT
     Dosage: 25 MG, QID
     Route: 065
  3. PREDNISONE [Concomitant]
     Indication: RENAL TRANSPLANT
     Dosage: 5 MG, DAILY
     Route: 065
  4. DILTIAZEM [Concomitant]
     Indication: HYPERTENSION
     Dosage: 120 MG, DAILY
     Route: 065
  5. ATENOLOL [Concomitant]
     Indication: HYPERTENSION
     Dosage: 50 MG, DAILY
     Route: 065
  6. ALLOPURINOL [Concomitant]
     Indication: PRODUCT USED FOR UNKNOWN INDICATION
     Dosage: 150 MG, DAILY
     Route: 065
  7. METHIMAZOLE [Concomitant]
     Indication: HYPERTHYROIDISM
     Dosage: 2.5 MG, DAILY
     Route: 065
  8. RISEDRONATE SODIUM [Concomitant]
     Indication: PRODUCT USED FOR UNKNOWN INDICATION
     Dosage: 35 MG, 1/WEEK
     Route: 065
  9. TEMAZEPAM [Concomitant]
     Indication: PRODUCT USED FOR UNKNOWN INDICATION
     Dosage: UNK, AS NEEDED
     Route: 065
  10. ALPRAZOLAM [Concomitant]
     Indication: PRODUCT USED FOR UNKNOWN INDICATION
     Dosage: UNK, AS NEEDED
     Route: 065
  11. FUROSEMIDE [Concomitant]
     Indication: HYPERTENSION
     Dosage: UNK, AS NEEDED
     Route: 065

REACTIONS (2)
  - Renal infarct [Fatal]
  - Potentiating drug interaction [Fatal]
